FAERS Safety Report 21000472 (Version 1)
Quarter: 2022Q2

REPORT INFORMATION
  Report Type: Spontaneous
  Country: ES (occurrence: ES)
  Receive Date: 20220623
  Receipt Date: 20220623
  Transmission Date: 20220720
  Serious: Yes (Hospitalization, Other)
  Sender: FDA-Public Use
  Company Number: ES-MACLEODS PHARMACEUTICALS US LTD-MAC2022036167

PATIENT

DRUGS (2)
  1. TRAMADOL [Suspect]
     Active Substance: TRAMADOL
     Indication: Suicidal ideation
     Dosage: UNK
     Route: 048
  2. MORPHINE [Suspect]
     Active Substance: MORPHINE
     Indication: Suicidal ideation
     Dosage: 300 MILLIGRAM
     Route: 048

REACTIONS (14)
  - Suicide attempt [None]
  - Leukocytosis [Recovered/Resolved]
  - Depressed level of consciousness [Not Recovered/Not Resolved]
  - Bradyphrenia [Recovered/Resolved]
  - Hyperamylasaemia [Recovered/Resolved]
  - Troponin I increased [Recovering/Resolving]
  - Urinary retention [Recovered/Resolved]
  - Abdominal pain [Recovered/Resolved]
  - Headache [Recovered/Resolved]
  - Respiratory depression [Recovered/Resolved]
  - Vomiting [Recovered/Resolved]
  - Somnolence [Recovered/Resolved]
  - Miosis [Recovered/Resolved]
  - Overdose [Recovered/Resolved]
